FAERS Safety Report 14770526 (Version 5)
Quarter: 2018Q3

REPORT INFORMATION
  Report Type: Spontaneous
  Country: JP (occurrence: JP)
  Receive Date: 20180417
  Receipt Date: 20180803
  Transmission Date: 20181010
  Serious: Yes (Other)
  Sender: FDA-Public Use
  Company Number: JP-PFIZER INC-2018148554

PATIENT
  Age: 40 Year
  Sex: Female

DRUGS (2)
  1. HYSRON H [Suspect]
     Active Substance: MEDROXYPROGESTERONE
     Indication: ENDOMETRIAL CANCER
     Dosage: 600 MG, DAILY
     Route: 048
  2. MEDROXYPROGESTERONE ACETATE. [Suspect]
     Active Substance: MEDROXYPROGESTERONE ACETATE
     Indication: ENDOMETRIAL CANCER
     Dosage: 600 MG, DAILY
     Route: 048

REACTIONS (3)
  - Hyperglucagonaemia [Unknown]
  - Blood insulin increased [Unknown]
  - Product use in unapproved indication [Unknown]
